FAERS Safety Report 5626599-5 (Version None)
Quarter: 2008Q1

REPORT INFORMATION
  Report Type: 
  Country: None (occurrence: None)
  Receive Date: 20080214
  Receipt Date: 20080207
  Transmission Date: 20080703
  Serious: Yes (Death, Hospitalization, Other)
  Sender: FDA-Public Use
  Company Number: JP-SANOFI-SYNTHELABO-F01200800067

PATIENT
  Sex: Male

DRUGS (6)
  1. BEVACIZUMAB [Suspect]
     Indication: COLON CANCER METASTATIC
     Route: 042
     Dates: start: 20071217, end: 20071217
  2. STARSIS [Concomitant]
     Dates: start: 20070929, end: 20071220
  3. IRINOTECAN [Concomitant]
     Dates: start: 20071203, end: 20071217
  4. FLUOROURACIL [Suspect]
     Indication: COLON CANCER METASTATIC
     Dosage: UNK
     Route: 042
     Dates: start: 20071218, end: 20071218
  5. CALCIUM LEVOFOLINATE [Suspect]
     Indication: COLON CANCER METASTATIC
     Dosage: UNK
     Route: 042
     Dates: start: 20071218, end: 20071218
  6. OXALIPLATIN [Suspect]
     Indication: COLON CANCER METASTATIC
     Dosage: UNK
     Route: 041
     Dates: start: 20071119, end: 20071119

REACTIONS (6)
  - ACUTE RESPIRATORY DISTRESS SYNDROME [None]
  - DEHYDRATION [None]
  - JUGULAR VEIN THROMBOSIS [None]
  - PELVIC VENOUS THROMBOSIS [None]
  - PYREXIA [None]
  - STOMATITIS [None]
